FAERS Safety Report 8117292-8 (Version None)
Quarter: 2012Q1

REPORT INFORMATION
  Report Type: 
  Country: None (occurrence: None)
  Receive Date: 20120206
  Receipt Date: 20120130
  Transmission Date: 20120608
  Serious: Yes (Disabling, Other)
  Sender: FDA-Public Use
  Company Number: US-ASTRAZENECA-2012SE06391

PATIENT
  Age: 72 Year
  Sex: Female
  Weight: 68 kg

DRUGS (17)
  1. CRESTOR [Suspect]
     Indication: BLOOD TRIGLYCERIDES INCREASED
     Route: 048
     Dates: end: 20111201
  2. LIPITOR [Suspect]
     Route: 048
     Dates: start: 20111201
  3. LIPITOR [Suspect]
     Route: 048
  4. CRESTOR [Suspect]
     Indication: HYPERTENSION
     Route: 048
     Dates: end: 20111201
  5. LIPITOR [Suspect]
     Route: 048
  6. LIPITOR [Suspect]
     Route: 048
     Dates: start: 20111201
  7. LIPITOR [Suspect]
     Indication: BLOOD TRIGLYCERIDES INCREASED
     Route: 048
     Dates: end: 20111201
  8. METFORMIN HCL [Concomitant]
     Indication: DIABETES MELLITUS
  9. LIPITOR [Suspect]
     Route: 048
     Dates: start: 20111201
  10. LIPITOR [Suspect]
     Route: 048
  11. CRESTOR [Suspect]
     Indication: BLOOD CHOLESTEROL INCREASED
     Route: 048
     Dates: end: 20111201
  12. CRESTOR [Suspect]
     Indication: STENT PLACEMENT
     Route: 048
     Dates: end: 20111201
  13. LIPITOR [Suspect]
     Indication: BLOOD CHOLESTEROL INCREASED
     Route: 048
     Dates: end: 20111201
  14. LIPITOR [Suspect]
     Route: 048
     Dates: start: 20111201
  15. LIPITOR [Suspect]
     Route: 048
  16. LIPITOR [Suspect]
     Indication: HYPERTENSION
     Route: 048
     Dates: end: 20111201
  17. LIPITOR [Suspect]
     Indication: STENT PLACEMENT
     Route: 048
     Dates: end: 20111201

REACTIONS (5)
  - ABASIA [None]
  - PAIN IN EXTREMITY [None]
  - MYALGIA [None]
  - BACK PAIN [None]
  - DRUG INEFFECTIVE [None]
